FAERS Safety Report 4923956-7 (Version None)
Quarter: 2006Q1

REPORT INFORMATION
  Report Type: 
  Country: None (occurrence: None)
  Receive Date: 20060221
  Receipt Date: 20060208
  Transmission Date: 20060701
  Serious: Yes (Hospitalization)
  Sender: FDA-Public Use
  Company Number: 2006022536

PATIENT
  Age: 77 Year
  Sex: Female

DRUGS (5)
  1. ATARAX [Suspect]
     Indication: ILL-DEFINED DISORDER
     Dosage: 25 MG (1 D), ORAL
     Route: 048
     Dates: start: 20050821
  2. PANTOPRAZOLE SODIUM [Suspect]
     Indication: ILL-DEFINED DISORDER
     Dosage: 40 MG (1 D)
  3. FENOFIBRATE [Suspect]
     Indication: RENAL GLYCOSURIA
     Dosage: 67 MG (1 D), ORAL
     Route: 048
     Dates: end: 20051207
  4. HYPERIUM (RILMENIDINE) [Suspect]
     Indication: ESSENTIAL HYPERTENSION
     Dosage: 1 MG (1 D), ORAL
     Route: 048
  5. IRBESARTAN [Suspect]
     Indication: ESSENTIAL HYPERTENSION
     Dosage: 150 MG (1 D), ORAL
     Route: 048
     Dates: start: 20050821

REACTIONS (2)
  - ERYSIPELAS [None]
  - RHABDOMYOLYSIS [None]
